FAERS Safety Report 14724167 (Version 1)
Quarter: 2018Q2

REPORT INFORMATION
  Report Type: Spontaneous
  Country: DK (occurrence: DK)
  Receive Date: 20180405
  Receipt Date: 20180405
  Transmission Date: 20180711
  Serious: Yes (Other)
  Sender: FDA-Public Use
  Company Number: DK-NOVOPROD-592778

PATIENT
  Sex: Female

DRUGS (1)
  1. LEVEMIR [Suspect]
     Active Substance: INSULIN DETEMIR
     Indication: TYPE 1 DIABETES MELLITUS
     Dosage: UNAVAIL
     Route: 058

REACTIONS (5)
  - Injection site erythema [Unknown]
  - Fatigue [Unknown]
  - Renal haemorrhage [Unknown]
  - Asthenia [Unknown]
  - Blood glucose increased [Unknown]
